FAERS Safety Report 18430630 (Version 14)
Quarter: 2022Q3

REPORT INFORMATION
  Report Type: Report from Study
  Country: US (occurrence: US)
  Receive Date: 20201027
  Receipt Date: 20220719
  Transmission Date: 20221027
  Serious: Yes (Hospitalization)
  Sender: FDA-Public Use
  Company Number: NVSC2020US283475

PATIENT
  Age: 50 Year
  Sex: Female
  Weight: 87.2 kg

DRUGS (14)
  1. KYMRIAH [Suspect]
     Active Substance: TISAGENLECLEUCEL
     Indication: Non-Hodgkin^s lymphoma
     Dosage: 3.3X10E8 CELLS
     Route: 042
     Dates: start: 20200921
  2. RITUXIMAB [Suspect]
     Active Substance: RITUXIMAB
     Indication: Non-Hodgkin^s lymphoma
     Dosage: 800 MG, ONCE
     Route: 030
     Dates: start: 20200824
  3. CISPLATIN [Suspect]
     Active Substance: CISPLATIN
     Indication: Non-Hodgkin^s lymphoma
     Dosage: 204 MG, ONCE
     Route: 042
     Dates: start: 20200825
  4. TOCILIZUMAB [Suspect]
     Active Substance: TOCILIZUMAB
     Indication: Non-Hodgkin^s lymphoma
     Dosage: 8 MG/KG
     Route: 042
     Dates: start: 20200927
  5. CYTARABINE [Suspect]
     Active Substance: CYTARABINE
     Indication: Non-Hodgkin^s lymphoma
     Dosage: 8.2 G, BID
     Route: 042
     Dates: start: 20200826
  6. PEGFILGRASTIM [Concomitant]
     Active Substance: PEGFILGRASTIM
     Indication: Neutropenia
     Dosage: UNK
     Route: 065
     Dates: start: 20201012, end: 20201012
  7. FLUOCINOLONE [Concomitant]
     Active Substance: FLUOCINOLONE
     Indication: Rash
     Dosage: UNK
     Route: 065
     Dates: start: 20201009
  8. FLUOCINOLONE [Concomitant]
     Active Substance: FLUOCINOLONE
     Indication: Pruritus
  9. FLUDARABINE [Concomitant]
     Active Substance: FLUDARABINE PHOSPHATE
     Indication: Chemotherapy
     Dosage: 51.25 MG, ONCE
     Route: 065
     Dates: start: 20200916, end: 20200916
  10. FLUDARABINE [Concomitant]
     Active Substance: FLUDARABINE PHOSPHATE
     Dosage: 51.25 MG, ONCE
     Route: 065
     Dates: start: 20200917, end: 20200917
  11. FLUDARABINE [Concomitant]
     Active Substance: FLUDARABINE PHOSPHATE
     Dosage: 51.25 MG, ONCE
     Route: 065
     Dates: start: 20200918
  12. CYCLOPHOSPHAMIDE [Concomitant]
     Active Substance: CYCLOPHOSPHAMIDE
     Indication: Chemotherapy
     Dosage: 500 MG, ONCE
     Route: 065
     Dates: start: 20200916, end: 20200916
  13. CYCLOPHOSPHAMIDE [Concomitant]
     Active Substance: CYCLOPHOSPHAMIDE
     Dosage: 500 MG, ONCE
     Route: 065
     Dates: start: 20200917, end: 20200917
  14. CYCLOPHOSPHAMIDE [Concomitant]
     Active Substance: CYCLOPHOSPHAMIDE
     Dosage: 500 MG, ONCE
     Route: 065
     Dates: start: 20200918

REACTIONS (1)
  - Dyspnoea [Recovered/Resolved]

NARRATIVE: CASE EVENT DATE: 20201020
